APPROVED DRUG PRODUCT: PROPRANOLOL HYDROCHLORIDE AND HYDROCHLOROTHIAZIDE
Active Ingredient: HYDROCHLOROTHIAZIDE; PROPRANOLOL HYDROCHLORIDE
Strength: 25MG;40MG
Dosage Form/Route: TABLET;ORAL
Application: A071060 | Product #001
Applicant: CHARTWELL RX SCIENCES LLC
Approved: Aug 26, 1987 | RLD: No | RS: No | Type: DISCN